FAERS Safety Report 4919836-3 (Version None)
Quarter: 2006Q1

REPORT INFORMATION
  Report Type: 
  Country: None (occurrence: None)
  Receive Date: 20060217
  Receipt Date: 20060202
  Transmission Date: 20060701
  Serious: Yes (Death)
  Sender: FDA-Public Use
  Company Number: 2006S1001002

PATIENT
  Age: 55 Year
  Sex: Female

DRUGS (1)
  1. CLOZAPINE [Suspect]
     Indication: SCHIZOAFFECTIVE DISORDER
     Dosage: 200 MG;HS;ORAL
     Route: 048
     Dates: end: 20060101

REACTIONS (2)
  - LUNG CANCER METASTATIC [None]
  - MENTAL STATUS CHANGES [None]
